FAERS Safety Report 17055243 (Version 2)
Quarter: 2020Q1

REPORT INFORMATION
  Report Type: Spontaneous
  Country: CA (occurrence: CA)
  Receive Date: 20191120
  Receipt Date: 20200212
  Transmission Date: 20200409
  Serious: Yes (Hospitalization)
  Sender: FDA-Public Use
  Company Number: CA-ANIPHARMA-2019-CA-001673

PATIENT
  Age: 86 Year
  Sex: Female

DRUGS (15)
  1. METOCLOPRAMIDE HYDROCHLORIDE. [Suspect]
     Active Substance: METOCLOPRAMIDE HYDROCHLORIDE
     Dosage: UNKNOWN
     Route: 065
  2. K-DUR [Suspect]
     Active Substance: POTASSIUM CHLORIDE
     Dosage: 20 MEQ QD
     Route: 065
  3. LASIX [Suspect]
     Active Substance: FUROSEMIDE
     Dosage: 20 MG QD
     Route: 065
  4. UNIPHYL [Suspect]
     Active Substance: THEOPHYLLINE ANHYDROUS
     Dosage: 400 MG QD
     Route: 065
  5. CANDESARTAN. [Suspect]
     Active Substance: CANDESARTAN
     Indication: PRODUCT USED FOR UNKNOWN INDICATION
     Dosage: 8 MG QD
     Route: 048
  6. CALCIUM [Suspect]
     Active Substance: CALCIUM
     Dosage: 500 MG BID
     Route: 065
     Dates: start: 201904
  7. NASONEX [Suspect]
     Active Substance: MOMETASONE FUROATE
     Dosage: 2 DF DAILY / 2 DF BID
     Route: 065
  8. QUETIAPINE. [Suspect]
     Active Substance: QUETIAPINE
     Dosage: 12.5 MG UNK
     Route: 048
  9. LACTULOSE. [Suspect]
     Active Substance: LACTULOSE
     Dosage: UNKNOWN
     Route: 065
  10. VENTOLIN [Suspect]
     Active Substance: ALBUTEROL SULFATE
     Dosage: 2 DF DAILY
     Route: 065
     Dates: start: 201904
  11. TYLENOL [Suspect]
     Active Substance: ACETAMINOPHEN
     Dosage: UNKNOWN
     Route: 065
  12. MEPOLIZUMAB [Suspect]
     Active Substance: MEPOLIZUMAB
     Dosage: 100 MG MONTH
     Route: 065
     Dates: start: 20180723
  13. DEXILANT [Suspect]
     Active Substance: DEXLANSOPRAZOLE
     Dosage: 30 MG QD
     Route: 065
  14. ADVAIR HFA [Suspect]
     Active Substance: FLUTICASONE PROPIONATE\SALMETEROL XINAFOATE
     Dosage: 2 DF BID
     Route: 055
     Dates: start: 201904
  15. IRON [Suspect]
     Active Substance: IRON
     Dosage: 300 MG QD
     Route: 065
     Dates: start: 201904

REACTIONS (15)
  - Rib fracture [Recovered/Resolved]
  - Dyspnoea [Unknown]
  - Wheezing [Unknown]
  - Thoracic operation [Recovered/Resolved]
  - Rhinorrhoea [Unknown]
  - Flail chest [Unknown]
  - Lung perforation [Recovered/Resolved]
  - Sputum discoloured [Unknown]
  - Fall [Recovered/Resolved]
  - Asthma [Recovered/Resolved]
  - Lower limb fracture [Recovered/Resolved]
  - Cough [Unknown]
  - Loss of personal independence in daily activities [Unknown]
  - Pneumonia [Recovered/Resolved]
  - Accident [Recovered/Resolved]

NARRATIVE: CASE EVENT DATE: 201904
